FAERS Safety Report 4703201-8 (Version None)
Quarter: 2005Q2

REPORT INFORMATION
  Report Type: 
  Country: None (occurrence: None)
  Receive Date: 20050629
  Receipt Date: 20050513
  Transmission Date: 20051028
  Serious: Yes (Disabling, Other)
  Sender: FDA-Public Use
  Company Number: PHFR2005GB01806

PATIENT
  Age: 54 Year
  Sex: Female

DRUGS (4)
  1. ZOMETA [Suspect]
     Indication: METASTASIS
     Dosage: 4 MG, QMO
     Route: 042
     Dates: start: 20030201
  2. CALCICHEW D3 [Concomitant]
     Dosage: ONE
     Route: 048
     Dates: start: 20030201
  3. ARIMIDEX [Concomitant]
     Indication: HORMONE REPLACEMENT THERAPY
     Dosage: 10MG/DAY
     Route: 048
     Dates: start: 20010701
  4. MST [Concomitant]
     Indication: PAIN
     Dosage: 80 MG, BID
     Route: 048
     Dates: start: 19990101

REACTIONS (7)
  - ACTINOMYCOSIS [None]
  - ASEPTIC NECROSIS BONE [None]
  - IMPAIRED HEALING [None]
  - INFECTION [None]
  - POST PROCEDURAL COMPLICATION [None]
  - SEPSIS [None]
  - TOOTH EXTRACTION [None]
